FAERS Safety Report 23970220 (Version 5)
Quarter: 2024Q4

REPORT INFORMATION
  Report Type: Spontaneous
  Country: JP (occurrence: JP)
  Receive Date: 20240613
  Receipt Date: 20241221
  Transmission Date: 20250114
  Serious: Yes (Hospitalization, Other)
  Sender: AMGEN
  Company Number: JP-AMGEN-HZN-2024-005548

PATIENT
  Age: 55 Year
  Sex: Female
  Weight: 55.1 kg

DRUGS (7)
  1. UPLIZNA [Suspect]
     Active Substance: INEBILIZUMAB-CDON
     Indication: Neuromyelitis optica spectrum disorder
     Dosage: 300 MILLIGRAM, QD
     Route: 042
     Dates: start: 20240404
  2. UPLIZNA [Suspect]
     Active Substance: INEBILIZUMAB-CDON
     Dosage: 300 MILLIGRAM, QD
     Route: 042
     Dates: start: 20240419
  3. UPLIZNA [Suspect]
     Active Substance: INEBILIZUMAB-CDON
     Dosage: 300 MILLIGRAM, QD
     Route: 042
     Dates: start: 20240926
  4. PREDONINE [Concomitant]
     Active Substance: PREDNISOLONE
     Indication: Neuromyelitis optica spectrum disorder
     Dosage: UNK
     Dates: start: 20231109
  5. SULFAMETHOXAZOLE\TRIMETHOPRIM [Concomitant]
     Active Substance: SULFAMETHOXAZOLE\TRIMETHOPRIM
     Indication: Neuromyelitis optica spectrum disorder
     Dosage: UNK
     Dates: start: 20231109, end: 20240729
  6. NEXIUM [Concomitant]
     Active Substance: ESOMEPRAZOLE MAGNESIUM
     Indication: Neuromyelitis optica spectrum disorder
     Dosage: UNK
     Dates: start: 20231109, end: 20240126
  7. ELDECALCITOL [Concomitant]
     Active Substance: ELDECALCITOL
     Indication: Neuromyelitis optica spectrum disorder
     Dosage: UNK
     Dates: start: 20231109, end: 20240729

REACTIONS (4)
  - VIth nerve paralysis [Not Recovered/Not Resolved]
  - Neuromyelitis optica spectrum disorder [Recovering/Resolving]
  - Infusion related reaction [Recovered/Resolved]
  - Visual impairment [Recovered/Resolved]

NARRATIVE: CASE EVENT DATE: 20240404
